FAERS Safety Report 9763989 (Version 1)
Quarter: 2013Q4

REPORT INFORMATION
  Report Type: Spontaneous
  Country: US (occurrence: US)
  Receive Date: 20131216
  Receipt Date: 20131216
  Transmission Date: 20140711
  Serious: No
  Sender: FDA-Public Use
  Company Number: US-BIOGENIDEC-2013BI115586

PATIENT
  Sex: Female

DRUGS (5)
  1. TECFIDERA [Suspect]
     Indication: MULTIPLE SCLEROSIS
     Route: 048
     Dates: end: 20131118
  2. ASPIRIN [Concomitant]
  3. VIT D [Concomitant]
  4. LYRICA [Concomitant]
  5. TEGRETOL [Concomitant]

REACTIONS (2)
  - Platelet count decreased [Unknown]
  - Flushing [Unknown]
